FAERS Safety Report 5565057-3 (Version None)
Quarter: 2007Q4

REPORT INFORMATION
  Report Type: 
  Country: None (occurrence: None)
  Receive Date: 20071212
  Receipt Date: 20071128
  Transmission Date: 20080405
  Serious: Yes (Death)
  Sender: FDA-Public Use
  Company Number: 2006S1000224

PATIENT
  Age: 5 Month
  Sex: Female

DRUGS (3)
  1. CUBICIN [Suspect]
     Indication: STAPHYLOCOCCAL BACTERAEMIA
     Dosage: 6 MG/KG; Q24H; IV
     Route: 042
  2. CUBICIN [Suspect]
     Indication: STAPHYLOCOCCAL SEPSIS
     Dosage: 6 MG/KG; Q24H; IV
     Route: 042
  3. VANCOMYCIN [Concomitant]

REACTIONS (4)
  - COAGULOPATHY [None]
  - CONDITION AGGRAVATED [None]
  - LIVER DISORDER [None]
  - PULMONARY HAEMORRHAGE [None]
